FAERS Safety Report 10490227 (Version 1)
Quarter: 2014Q4

REPORT INFORMATION
  Report Type: Spontaneous
  Country: TR (occurrence: TR)
  Receive Date: 20141002
  Receipt Date: 20141002
  Transmission Date: 20150528
  Serious: Yes (Life-Threatening, Hospitalization, Other)
  Sender: FDA-Public Use
  Company Number: TR-ASTRAZENECA-2014SE73446

PATIENT
  Age: 6 Year
  Sex: Male

DRUGS (4)
  1. AMPHOTERICIN B. [Suspect]
     Active Substance: AMPHOTERICIN B
     Indication: SEPTIC SHOCK
  2. GENTAMYCIN [Suspect]
     Active Substance: GENTAMICIN
     Indication: SEPTIC SHOCK
  3. VANCOMYCIN [Suspect]
     Active Substance: VANCOMYCIN
     Indication: SEPTIC SHOCK
  4. MEROPENEM. [Suspect]
     Active Substance: MEROPENEM
     Indication: SEPTIC SHOCK
     Route: 042

REACTIONS (3)
  - Generalised oedema [Unknown]
  - Respiratory failure [Unknown]
  - Acute kidney injury [Recovered/Resolved]
